FAERS Safety Report 5331349-6 (Version None)
Quarter: 2007Q2

REPORT INFORMATION
  Report Type: 
  Country: None (occurrence: None)
  Receive Date: 20070522
  Receipt Date: 20070510
  Transmission Date: 20071010
  Serious: Yes (Other)
  Sender: FDA-Public Use
  Company Number: AU-SANOFI-SYNTHELABO-A01200704933

PATIENT
  Sex: Male

DRUGS (1)
  1. STILNOX CR [Suspect]
     Indication: SLEEP DISORDER
     Dosage: 12.5 MG
     Route: 048
     Dates: end: 20070415

REACTIONS (2)
  - ABNORMAL SLEEP-RELATED EVENT [None]
  - THERMAL BURN [None]
